FAERS Safety Report 7328125-1 (Version None)
Quarter: 2011Q1

REPORT INFORMATION
  Report Type: 
  Country: None (occurrence: None)
  Receive Date: 20110303
  Receipt Date: 20110218
  Transmission Date: 20110831
  Serious: Yes (Other)
  Sender: FDA-Public Use
  Company Number: PHHY2010BR48541

PATIENT
  Age: 52 Year
  Sex: Male
  Weight: 82 kg

DRUGS (4)
  1. LEPONEX [Suspect]
     Indication: BIPOLAR DISORDER
     Dosage: 1 DF, QD
     Route: 048
     Dates: start: 20020101
  2. SIMVASTATIN [Concomitant]
     Indication: BLOOD CHOLESTEROL INCREASED
     Dosage: 1 TABLET DAILY
  3. FENATYL [Concomitant]
     Indication: DEPRESSION
     Dosage: 1 TABLET DAILY
     Route: 048
     Dates: start: 19930101
  4. ALPRAZOLAM [Concomitant]
     Indication: ANXIETY
     Dosage: UNK
     Dates: start: 20040101

REACTIONS (4)
  - BLOOD URIC ACID INCREASED [None]
  - SKIN INFECTION [None]
  - DERMATITIS [None]
  - BLOOD CHOLESTEROL INCREASED [None]
